FAERS Safety Report 21758881 (Version 1)
Quarter: 2022Q4

REPORT INFORMATION
  Report Type: Report from Study
  Country: US (occurrence: US)
  Receive Date: 20221221
  Receipt Date: 20221221
  Transmission Date: 20230113
  Serious: No
  Sender: FDA-Public Use
  Company Number: US-ABBVIE-4198574

PATIENT
  Sex: Male

DRUGS (1)
  1. SKYRIZI [Suspect]
     Active Substance: RISANKIZUMAB-RZAA
     Indication: Psoriasis
     Dosage: START DATE OF EVENT VEINS HARD TO FIND, STUFFY NOSE, ALLERGIES AND NERVOUSNESS WAS CONSIDERED AS ...
     Route: 058
     Dates: start: 20220208

REACTIONS (4)
  - Nasal congestion [Unknown]
  - Hypersensitivity [Not Recovered/Not Resolved]
  - Nervousness [Unknown]
  - Vein disorder [Not Recovered/Not Resolved]
